FAERS Safety Report 21359209 (Version 2)
Quarter: 2022Q3

REPORT INFORMATION
  Report Type: Spontaneous
  Country: US (occurrence: US)
  Receive Date: 20220921
  Receipt Date: 20220922
  Transmission Date: 20221027
  Serious: No
  Sender: FDA-Public Use
  Company Number: US-PFIZER INC-202201173284

PATIENT
  Age: 52 Year
  Sex: Male
  Weight: 95.25 kg

DRUGS (3)
  1. PAXLOVID [Suspect]
     Active Substance: NIRMATRELVIR\RITONAVIR
     Indication: COVID-19 treatment
     Dosage: [PF-07321332 300 MG]/[RITONAVIR 100 MG]; 2X/DAY
     Route: 048
     Dates: start: 20220918
  2. ATORVASTATIN [Concomitant]
     Active Substance: ATORVASTATIN
     Indication: Blood cholesterol increased
     Dosage: 40 MG, 1X/DAY (40MG ONCE PER DAY BY MOUTH)
     Route: 048
     Dates: start: 2018
  3. ICOSAPENT ETHYL [Concomitant]
     Active Substance: ICOSAPENT ETHYL
     Indication: Blood cholesterol increased
     Dosage: 2 G, 2X/DAY, (1 GRAM, TWO IN THE MORNING AND TWO AT NIGHT)
     Dates: start: 2022

REACTIONS (3)
  - Taste disorder [Unknown]
  - Dysgeusia [Recovered/Resolved]
  - Musculoskeletal stiffness [Unknown]

NARRATIVE: CASE EVENT DATE: 20220918
